FAERS Safety Report 22386470 (Version 2)
Quarter: 2024Q4

REPORT INFORMATION
  Report Type: Report from Study
  Country: CA (occurrence: CA)
  Receive Date: 20230531
  Receipt Date: 20241210
  Transmission Date: 20250115
  Serious: No
  Sender: CELLTRION
  Company Number: CA-CELLTRION INC.-2023CA011013

PATIENT

DRUGS (23)
  1. RITUXIMAB-ABBS [Suspect]
     Active Substance: RITUXIMAB-ABBS
     Indication: Myasthenia gravis
     Dosage: 925 MG, X 4 WEEKS (NOT STARTED)
     Route: 042
  2. RITUXIMAB-ABBS [Suspect]
     Active Substance: RITUXIMAB-ABBS
     Dosage: 925 MG (INFUSION#1)
     Route: 042
     Dates: start: 20230901
  3. RITUXIMAB-ABBS [Suspect]
     Active Substance: RITUXIMAB-ABBS
     Dosage: 925 MG (INFUSION#2)
     Route: 042
     Dates: start: 20230901
  4. RITUXIMAB-ABBS [Suspect]
     Active Substance: RITUXIMAB-ABBS
     Dosage: 925 MG (INFUSION#3)
     Route: 042
     Dates: start: 20230901
  5. RITUXIMAB-ABBS [Suspect]
     Active Substance: RITUXIMAB-ABBS
     Dosage: 925 MG (INFUSION#4)
     Route: 042
     Dates: start: 20230901
  6. RITUXIMAB-ABBS [Suspect]
     Active Substance: RITUXIMAB-ABBS
     Dosage: 500 MG, Q6MONTHS
     Route: 042
  7. RITUXIMAB-ABBS [Suspect]
     Active Substance: RITUXIMAB-ABBS
     Dosage: 500 MG, Q6MONTHS
     Route: 042
     Dates: start: 20230901
  8. CANDESARTAN [Concomitant]
     Active Substance: CANDESARTAN
     Indication: Blood pressure measurement
     Dosage: ONCE DAILY
  9. MESTINON [Concomitant]
     Active Substance: PYRIDOSTIGMINE BROMIDE
     Dosage: (2 IN THE AM, 2 IN THE AFTERNOON, AND 2 AT NIGHT)
  10. GABAPENTIN [Concomitant]
     Active Substance: GABAPENTIN
     Indication: Neuralgia
     Dosage: BID (1 CAP IN THE AM AND 1 CAP AT NIGHT)
  11. IMURAN [Concomitant]
     Active Substance: AZATHIOPRINE
     Dosage: 6 DF/ 6 TABS IN THE AM
  12. PREDNISONE [Concomitant]
     Active Substance: PREDNISONE
     Dosage: ONCE DAILY STEROID. HAS DECREASED GRADUALLY
  13. PANTOPRAZOLE [Concomitant]
     Active Substance: PANTOPRAZOLE
     Indication: Gastrooesophageal reflux disease
     Dosage: 1 TAB TWICE DAILY OR AS DIRECTED BY PHYSICIAN
  14. RANITIDINE [Concomitant]
     Active Substance: RANITIDINE
     Indication: Gastrooesophageal reflux disease
     Dosage: 1  TAB IN THE AM AND 1 TAB AT NIGHT
  15. VENTOLIN [Concomitant]
     Active Substance: ALBUTEROL SULFATE
     Dosage: 2 PUFFS 4 TIMES DAILY WHEN NEEDED
  16. ADVAIR HFA [Concomitant]
     Active Substance: FLUTICASONE PROPIONATE\SALMETEROL XINAFOATE
     Dosage: 125 MCG 1 PUFF TWICE DAILY (HASN^T USED IN 6-7 MONTHS)
  17. METFORMIN [Concomitant]
     Active Substance: METFORMIN HYDROCHLORIDE
     Indication: Diabetes mellitus
     Dosage: 1 TAB TWICE DAILY
  18. MYRBETRIQ [Concomitant]
     Active Substance: MIRABEGRON
     Dosage: 1 TAB ONCE DAILY
  19. TYLENOL EXTRA STRENGTH [Concomitant]
     Active Substance: ACETAMINOPHEN
     Dosage: WHEN NEEDED
  20. ROXACET [Concomitant]
     Indication: Back pain
     Dosage: WHEN NEEDED
  21. ACETAMINOPHEN [Concomitant]
     Active Substance: ACETAMINOPHEN
     Indication: Premedication
     Dosage: UNK
     Route: 048
  22. SOLU-MEDROL [Concomitant]
     Active Substance: METHYLPREDNISOLONE SODIUM SUCCINATE
     Indication: Premedication
     Dosage: UNK
     Route: 042
  23. VARICELLA-ZOSTER VIRUS STRAIN OKA/MERCK LIVE ANTIGEN [Concomitant]
     Active Substance: VARICELLA-ZOSTER VIRUS STRAIN OKA/MERCK LIVE ANTIGEN
     Indication: Herpes zoster
     Dosage: PATIENT FURTHER REPORTS THAT HE HAD HIS SHINGLES VACCINE LAST TUESDAY (VERIFIED APRIL 16TH WITH PATI
     Dates: start: 20240416

REACTIONS (9)
  - Pain in extremity [Unknown]
  - Back pain [Unknown]
  - Arthralgia [Unknown]
  - Fatigue [Not Recovered/Not Resolved]
  - Malaise [Unknown]
  - Off label use [Unknown]
  - Treatment delayed [Unknown]
  - Product dose omission issue [Unknown]
  - Refusal of treatment by patient [Unknown]

NARRATIVE: CASE EVENT DATE: 20230901
